FAERS Safety Report 19561433 (Version 3)
Quarter: 2021Q3

REPORT INFORMATION
  Report Type: Spontaneous
  Country: JP (occurrence: JP)
  Receive Date: 20210716
  Receipt Date: 20210928
  Transmission Date: 20211014
  Serious: Yes (Hospitalization, Other)
  Sender: FDA-Public Use
  Company Number: JP-LUPIN PHARMACEUTICALS INC.-2021-11996

PATIENT
  Age: 20 Year
  Sex: Male

DRUGS (3)
  1. LEVOFLOXACIN. [Suspect]
     Active Substance: LEVOFLOXACIN
     Indication: NASOPHARYNGITIS
     Dosage: UNK
     Route: 048
  2. MOXONIDINE [Concomitant]
     Active Substance: MOXONIDINE
     Indication: NASOPHARYNGITIS
     Dosage: UNK
     Route: 048
  3. LOXOPROFEN SODIUM [Concomitant]
     Active Substance: LOXOPROFEN SODIUM
     Indication: NASOPHARYNGITIS
     Dosage: UNK
     Route: 048

REACTIONS (2)
  - Drug eruption [Recovered/Resolved]
  - Anaphylactic reaction [Recovered/Resolved]
